FAERS Safety Report 6518168-X (Version None)
Quarter: 2009Q4

REPORT INFORMATION
  Report Type: 
  Country: None (occurrence: None)
  Receive Date: 20091223
  Receipt Date: 20091223
  Transmission Date: 20100525
  Serious: Yes (Hospitalization, Other)
  Sender: FDA-Public Use
  Company Number: None

PATIENT
  Age: 31 Year
  Sex: Male
  Weight: 79.3795 kg

DRUGS (1)
  1. EFFEXOR XR [Suspect]
     Indication: MAJOR DEPRESSION
     Dosage: 37.5MG ONCE DAILY PO
     Route: 048
     Dates: start: 19980101, end: 20091215

REACTIONS (10)
  - ACTIVITIES OF DAILY LIVING IMPAIRED [None]
  - DRUG PRESCRIBING ERROR [None]
  - EMOTIONAL DISORDER [None]
  - HEADACHE [None]
  - HOSTILITY [None]
  - IRRITABILITY [None]
  - NAUSEA [None]
  - PARAESTHESIA [None]
  - SUICIDAL IDEATION [None]
  - VISION BLURRED [None]
